FAERS Safety Report 6296122-3 (Version None)
Quarter: 2009Q3

REPORT INFORMATION
  Report Type: 
  Country: None (occurrence: None)
  Receive Date: 20090731
  Receipt Date: 20090715
  Transmission Date: 20100115
  Serious: Yes (Death, Life-Threatening, Hospitalization)
  Sender: FDA-Public Use
  Company Number: DL2009401

PATIENT
  Sex: Female
  Weight: 112.4921 kg

DRUGS (2)
  1. MIFEPRISTONE TABLETS, 200 MG (DANCO LABS) [Suspect]
     Indication: ABORTION INDUCED
     Dosage: 200 MG, ORAL
     Route: 048
     Dates: start: 20080812
  2. MISOPROSTOL [Suspect]
     Dosage: 800 MCG VAGINAL
     Route: 067
     Dates: start: 20080813

REACTIONS (7)
  - ABDOMINAL PAIN [None]
  - ENDOMETRITIS [None]
  - HAEMORRHAGE [None]
  - HYPOTENSION [None]
  - MYOMETRITIS [None]
  - SEPSIS [None]
  - VOMITING [None]
